FAERS Safety Report 16548545 (Version 1)
Quarter: 2019Q3

REPORT INFORMATION
  Report Type: Spontaneous
  Country: NO (occurrence: NO)
  Receive Date: 20190709
  Receipt Date: 20190709
  Transmission Date: 20191004
  Serious: Yes (Death, Hospitalization, Other)
  Sender: FDA-Public Use
  Company Number: NO-MYLANLABS-2019M1064008

PATIENT
  Age: 76 Year
  Sex: Male

DRUGS (9)
  1. TRACLEER [Interacting]
     Active Substance: BOSENTAN
     Indication: SYSTEMIC SCLERODERMA
     Dosage: 125 MILLIGRAM, BID
     Route: 048
     Dates: start: 200604, end: 20110118
  2. TRACLEER [Interacting]
     Active Substance: BOSENTAN
     Dosage: 62.5 MILLIGRAM, BID
     Route: 048
     Dates: start: 20110119, end: 201102
  3. SILDENAFIL. [Suspect]
     Active Substance: SILDENAFIL
     Indication: SYSTEMIC SCLERODERMA
     Dosage: 25 MILLIGRAM, TID
     Route: 048
     Dates: start: 200604, end: 201102
  4. SILDENAFIL. [Interacting]
     Active Substance: SILDENAFIL
     Indication: SKIN ULCER
  5. METFORMIN [Concomitant]
     Active Substance: METFORMIN HYDROCHLORIDE
     Indication: DIABETES MELLITUS
     Dosage: 850 MILLIGRAM, QD (850 MG, 1X/DAY)
     Route: 048
  6. ALBYL-E [Concomitant]
     Active Substance: ASPIRIN\MAGNESIUM OXIDE
     Indication: CORONARY ARTERY DISEASE
     Dosage: 75 MILLIGRAM, QD (75 MG, 1X/DAY)
     Route: 048
  7. TRACLEER [Interacting]
     Active Substance: BOSENTAN
     Indication: SKIN ULCER
     Dosage: 62.5 MILLIGRAM, BID
     Route: 048
     Dates: start: 20060324, end: 200604
  8. LEVAXIN [Concomitant]
     Active Substance: LEVOTHYROXINE SODIUM
     Indication: HYPERTHYROIDISM
     Dosage: 50 MICROGRAM, QD (50 UG, 1X/DAY)
     Route: 048
  9. LISINOPRIL. [Concomitant]
     Active Substance: LISINOPRIL
     Indication: CARDIAC FAILURE
     Dosage: 5 MILLIGRAM, QD (5 MG, 1X/DAY)
     Route: 048

REACTIONS (13)
  - Hepatic fibrosis [Not Recovered/Not Resolved]
  - Drug interaction [Unknown]
  - Gamma-glutamyltransferase increased [Not Recovered/Not Resolved]
  - Cholelithiasis [Not Recovered/Not Resolved]
  - Inflammation [Not Recovered/Not Resolved]
  - Abdominal distension [Not Recovered/Not Resolved]
  - Pleural effusion [Not Recovered/Not Resolved]
  - Hepatic cirrhosis [Not Recovered/Not Resolved]
  - Ascites [Not Recovered/Not Resolved]
  - Hepatic failure [Fatal]
  - Blood alkaline phosphatase increased [Not Recovered/Not Resolved]
  - Peritonitis bacterial [Unknown]
  - Biopsy liver [Not Recovered/Not Resolved]

NARRATIVE: CASE EVENT DATE: 201011
